FAERS Safety Report 23779756 (Version 1)
Quarter: 2024Q2

REPORT INFORMATION
  Report Type: Spontaneous
  Country: US (occurrence: US)
  Receive Date: 20240424
  Receipt Date: 20240424
  Transmission Date: 20240716
  Serious: Yes (Disabling)
  Sender: FDA-Public Use
  Company Number: US-SANDOZ-SDZ2024US041924

PATIENT
  Sex: Female

DRUGS (1)
  1. GENTAMICIN SULFATE [Suspect]
     Active Substance: GENTAMICIN SULFATE
     Indication: Product used for unknown indication
     Dosage: 2 DROP, QD
     Route: 065
     Dates: start: 202212

REACTIONS (6)
  - Eye pain [Unknown]
  - Eye swelling [Unknown]
  - Eye infection [Unknown]
  - Ocular discomfort [Unknown]
  - Ocular hyperaemia [Unknown]
  - Swelling face [Unknown]

NARRATIVE: CASE EVENT DATE: 20240412
